FAERS Safety Report 9005800 (Version 1)
Quarter: 2013Q1

REPORT INFORMATION
  Report Type: Spontaneous
  Country: US (occurrence: US)
  Receive Date: 20130109
  Receipt Date: 20130109
  Transmission Date: 20140127
  Serious: No
  Sender: FDA-Public Use
  Company Number: US-ABBOTT-12P-163-0957300-00

PATIENT
  Sex: Female

DRUGS (4)
  1. VICODIN [Suspect]
     Indication: PAIN
     Dosage: 1 IN 4 HOURS, AS NEEDED
     Route: 048
  2. HUMIRA [Concomitant]
     Indication: CROHN^S DISEASE
     Route: 058
     Dates: start: 200404, end: 2009
  3. HUMIRA [Concomitant]
     Route: 058
     Dates: start: 2009, end: 201204
  4. HUMIRA [Concomitant]
     Route: 058
     Dates: start: 201204

REACTIONS (1)
  - Drug ineffective [Recovered/Resolved]
